FAERS Safety Report 12219880 (Version 3)
Quarter: 2016Q2

REPORT INFORMATION
  Report Type: Spontaneous
  Country: MX (occurrence: MX)
  Receive Date: 20160330
  Receipt Date: 20160530
  Transmission Date: 20160815
  Serious: Yes (Other)
  Sender: FDA-Public Use
  Company Number: MX-ROCHE-1732318

PATIENT
  Age: 54 Year
  Sex: Female
  Weight: 43.5 kg

DRUGS (3)
  1. AVASTIN [Suspect]
     Active Substance: BEVACIZUMAB
     Indication: MACULAR OEDEMA
     Route: 050
     Dates: start: 20160317, end: 20160317
  2. MOXIFLOXACIN. [Concomitant]
     Active Substance: MOXIFLOXACIN
     Dosage: 1 DROP EVERY 5 DAYS
     Route: 065
  3. AVASTIN [Suspect]
     Active Substance: BEVACIZUMAB
     Dosage: ALONG WITH LASER THERAPY
     Route: 065

REACTIONS (4)
  - Suspected transmission of an infectious agent via product [Unknown]
  - Off label use [Unknown]
  - Endophthalmitis [Not Recovered/Not Resolved]
  - Product counterfeit [Unknown]

NARRATIVE: CASE EVENT DATE: 20160317
